FAERS Safety Report 7798603-X (Version None)
Quarter: 2011Q4

REPORT INFORMATION
  Report Type: 
  Country: None (occurrence: None)
  Receive Date: 20111005
  Receipt Date: 20110926
  Transmission Date: 20120403
  Serious: Yes (Hospitalization, Other)
  Sender: FDA-Public Use
  Company Number: US-ASTRAZENECA-2011SE21954

PATIENT
  Age: 53 Year
  Sex: Male
  Weight: 91.2 kg

DRUGS (20)
  1. SEROQUEL [Suspect]
     Route: 048
     Dates: start: 20110401
  2. METOPROLOL TARTRATE [Concomitant]
  3. SEROQUEL [Suspect]
     Route: 048
     Dates: start: 20110401
  4. CRESTOR [Suspect]
     Route: 048
     Dates: start: 20080101, end: 20110301
  5. CLONIPINE [Concomitant]
  6. FOL-NIACIN [Concomitant]
  7. SEROQUEL [Suspect]
     Route: 048
     Dates: start: 20110401
  8. METFORMIN HCL [Concomitant]
  9. ACCOF [Concomitant]
  10. ZESTRIL [Suspect]
     Indication: HYPERTENSION
     Route: 048
     Dates: end: 20090101
  11. SEROQUEL [Suspect]
     Indication: SLEEP DISORDER
     Route: 048
     Dates: start: 20110201, end: 20110330
  12. SEROQUEL [Suspect]
     Indication: BIPOLAR DISORDER
     Route: 048
     Dates: start: 20110201, end: 20110330
  13. ASPIRIN [Concomitant]
     Dosage: DAILY
  14. SEROQUEL [Suspect]
     Indication: ANXIETY
     Route: 048
     Dates: start: 20110201, end: 20110330
  15. SEROQUEL [Suspect]
     Indication: PSYCHOTIC DISORDER
     Route: 048
     Dates: start: 20110201, end: 20110330
  16. SEROQUEL [Suspect]
     Route: 048
     Dates: start: 20110401
  17. GLUCOTROL [Concomitant]
  18. ATACAND [Suspect]
     Indication: HYPERCHOLESTEROLAEMIA
     Route: 048
     Dates: start: 20090101, end: 20110301
  19. METOPROLOL TARTRATE [Concomitant]
  20. CELEXA [Concomitant]

REACTIONS (28)
  - ABNORMAL DREAMS [None]
  - MYOCARDIAL INFARCTION [None]
  - FALL [None]
  - DISEASE RECURRENCE [None]
  - PALPITATIONS [None]
  - DIARRHOEA [None]
  - WRONG TECHNIQUE IN DRUG USAGE PROCESS [None]
  - RIB FRACTURE [None]
  - AGGRESSION [None]
  - OFF LABEL USE [None]
  - SWELLING FACE [None]
  - SOMNOLENCE [None]
  - AMNESIA [None]
  - SLEEP TALKING [None]
  - LOSS OF CONSCIOUSNESS [None]
  - BLOOD PRESSURE INCREASED [None]
  - ASTHENIA [None]
  - DEPRESSION [None]
  - ANXIETY [None]
  - DIZZINESS [None]
  - SUICIDAL IDEATION [None]
  - CLAVICLE FRACTURE [None]
  - WEIGHT DECREASED [None]
  - WITHDRAWAL SYNDROME [None]
  - MOOD SWINGS [None]
  - LABORATORY TEST ABNORMAL [None]
  - INAPPROPRIATE SCHEDULE OF DRUG ADMINISTRATION [None]
  - DRUG DOSE OMISSION [None]
